FAERS Safety Report 10230466 (Version 3)
Quarter: 2014Q3

REPORT INFORMATION
  Report Type: Spontaneous
  Country: US (occurrence: US)
  Receive Date: 20140611
  Receipt Date: 20140912
  Transmission Date: 20150326
  Serious: No
  Sender: FDA-Public Use
  Company Number: US-INCYTE CORPORATION-2013IN003023

PATIENT
  Age: 76 Year
  Sex: Male

DRUGS (14)
  1. EXELON PATCH [Concomitant]
     Active Substance: RIVASTIGMINE
  2. SIMVASTATIN. [Concomitant]
     Active Substance: SIMVASTATIN
     Dosage: 20 MG, UNK
  3. CLONAZEPAM. [Concomitant]
     Active Substance: CLONAZEPAM
     Dosage: 1 MG, UNK
  4. LEVOTHYROXINE [Concomitant]
     Active Substance: LEVOTHYROXINE
  5. COENZYME Q10 [Concomitant]
     Active Substance: UBIDECARENONE
  6. DIOVAN [Concomitant]
     Active Substance: VALSARTAN
     Dosage: 90 MG, UNK
  7. OCUVITE [Concomitant]
     Active Substance: VITAMINS
  8. FISH OIL [Concomitant]
     Active Substance: FISH OIL
  9. ATENOLOL. [Concomitant]
     Active Substance: ATENOLOL
  10. JAKAFI [Suspect]
     Active Substance: RUXOLITINIB
     Indication: MYELOFIBROSIS
     Dosage: 5 MG, QD
     Route: 048
     Dates: start: 20131211
  11. JAKAFI [Suspect]
     Active Substance: RUXOLITINIB
     Indication: POLYCYTHAEMIA VERA
     Dosage: 10 MG, BID
     Route: 048
  12. VERAPAMIL [Concomitant]
     Active Substance: VERAPAMIL HYDROCHLORIDE
  13. ASPIRIN. [Concomitant]
     Active Substance: ASPIRIN
     Dosage: 81 MG
  14. JAKAFI [Suspect]
     Active Substance: RUXOLITINIB
     Indication: BONE MARROW INFILTRATION
     Dosage: 15 MG, BID
     Route: 048

REACTIONS (2)
  - Tooth injury [Not Recovered/Not Resolved]
  - Headache [Not Recovered/Not Resolved]

NARRATIVE: CASE EVENT DATE: 20131211
